FAERS Safety Report 10174334 (Version 1)
Quarter: 2014Q2

REPORT INFORMATION
  Report Type: Spontaneous
  Country: US (occurrence: US)
  Receive Date: 20140515
  Receipt Date: 20140515
  Transmission Date: 20141212
  Serious: Yes (Other)
  Sender: FDA-Public Use
  Company Number: US-ASTRAZENECA-2014SE27186

PATIENT
  Sex: Female

DRUGS (2)
  1. ATACAND [Suspect]
     Route: 048
  2. GENERIC OF FIORICET [Concomitant]
     Indication: MIGRAINE
     Dosage: NOT REPORTED UNK

REACTIONS (6)
  - Arthropathy [Unknown]
  - Blood pressure increased [Unknown]
  - Angle closure glaucoma [Unknown]
  - Migraine [Unknown]
  - Asthma [Unknown]
  - Abasia [Unknown]
